FAERS Safety Report 8618078 (Version 6)
Quarter: 2013Q2

REPORT INFORMATION
  Report Type: Report from Study
  Country: KR (occurrence: KR)
  Receive Date: 20120615
  Receipt Date: 20130408
  Transmission Date: 20140414
  Serious: Yes (Hospitalization)
  Sender: FDA-Public Use
  Company Number: KR-ROCHE-1069374

PATIENT
  Age: 64 Year
  Sex: Female
  Weight: 60.4 kg

DRUGS (2)
  1. VEMURAFENIB [Suspect]
     Indication: MALIGNANT MELANOMA
     Dosage: LAST DOSE PRIOR TO SAE: 11/MAY/2012
     Route: 048
     Dates: start: 20111219, end: 20120514
  2. VEMURAFENIB [Suspect]
     Route: 048
     Dates: start: 20120523

REACTIONS (1)
  - Cholecystitis [Recovered/Resolved]
